FAERS Safety Report 25742178 (Version 6)
Quarter: 2025Q4

REPORT INFORMATION
  Report Type: Report from Study
  Country: US (occurrence: US)
  Receive Date: 20250829
  Receipt Date: 20251110
  Transmission Date: 20260118
  Serious: Yes (Hospitalization, Other)
  Sender: DECIPHERA PHARMACEUTICALS
  Company Number: US-DECIPHERA PHARMACEUTICALS LLC-2025US001050

PATIENT
  Age: 77 Year
  Sex: Female

DRUGS (3)
  1. QINLOCK [Suspect]
     Active Substance: RIPRETINIB
     Indication: Malignant connective tissue neoplasm
     Dosage: 100 MILLIGRAM, QD (50 MG, 2 TABLETS)
     Dates: start: 20240906, end: 20250723
  2. QINLOCK [Suspect]
     Active Substance: RIPRETINIB
     Indication: Soft tissue sarcoma
     Dosage: 100 MILLIGRAM, QD
     Dates: start: 20250821, end: 2025
  3. QINLOCK [Suspect]
     Active Substance: RIPRETINIB
     Indication: Gastrointestinal stromal tumour
     Dosage: 100 MILLIGRAM, QD (50 MG, 2 TABLETS ONCE DAILY)
     Dates: start: 2025

REACTIONS (10)
  - Abdominal operation [Unknown]
  - Surgery [Unknown]
  - Post procedural infection [Unknown]
  - Deafness [Unknown]
  - Pain [Unknown]
  - Wound dehiscence [Unknown]
  - Urinary tract infection [Unknown]
  - Asthenia [Unknown]
  - Procedural nausea [Unknown]
  - Procedural vomiting [Unknown]

NARRATIVE: CASE EVENT DATE: 20250101
